FAERS Safety Report 15101552 (Version 2)
Quarter: 2019Q1

REPORT INFORMATION
  Report Type: Spontaneous
  Country: US (occurrence: US)
  Receive Date: 20180703
  Receipt Date: 20190315
  Transmission Date: 20190417
  Serious: No
  Sender: FDA-Public Use
  Company Number: US-PFIZER INC-2018266177

PATIENT
  Age: 59 Year
  Sex: Male
  Weight: 97.52 kg

DRUGS (2)
  1. ADVIL [Suspect]
     Active Substance: IBUPROFEN
     Indication: SCIATICA
     Dosage: ONE 200 MG TABLET BY MOUTH ONCE
     Route: 048
     Dates: start: 20180625, end: 20180625
  2. ASPIRIN. [Concomitant]
     Active Substance: ASPIRIN
     Indication: CEREBROVASCULAR ACCIDENT PROPHYLAXIS
     Dosage: 80 MG TABLET BY MOUTH ONCE DAILY
     Route: 048
     Dates: start: 201110

REACTIONS (3)
  - Expired product administered [Unknown]
  - Intentional product misuse [Unknown]
  - Drug ineffective for unapproved indication [Unknown]

NARRATIVE: CASE EVENT DATE: 20180625
